FAERS Safety Report 9240283 (Version 1)
Quarter: 2013Q2

REPORT INFORMATION
  Report Type: Spontaneous
  Country: US (occurrence: US)
  Receive Date: 20130418
  Receipt Date: 20130418
  Transmission Date: 20140414
  Serious: No
  Sender: FDA-Public Use
  Company Number: US-SANOFI-AVENTIS-2012SA052249

PATIENT
  Age: 49 Year
  Sex: Male

DRUGS (3)
  1. LOVENOX [Suspect]
     Indication: THROMBOSIS
     Route: 065
     Dates: start: 20120717, end: 20120718
  2. LOVENOX [Suspect]
     Indication: THROMBOSIS
     Route: 065
     Dates: start: 20120719
  3. DICLOFENAC SR [Concomitant]
     Indication: ARTHRITIS
     Dates: end: 20120720

REACTIONS (1)
  - Joint stiffness [Not Recovered/Not Resolved]
